FAERS Safety Report 20046577 (Version 3)
Quarter: 2023Q2

REPORT INFORMATION
  Report Type: Spontaneous
  Country: US (occurrence: US)
  Receive Date: 20211109
  Receipt Date: 20230526
  Transmission Date: 20230722
  Serious: Yes (Other)
  Sender: FDA-Public Use
  Company Number: US-JNJFOC-20211102838

PATIENT
  Age: 5 Decade
  Sex: Female

DRUGS (7)
  1. ELMIRON [Suspect]
     Active Substance: PENTOSAN POLYSULFATE SODIUM
     Indication: Cystitis interstitial
     Dosage: 300 MG TO 400 MG PER DAY
     Route: 048
     Dates: start: 1997, end: 2002
  2. ELMIRON [Suspect]
     Active Substance: PENTOSAN POLYSULFATE SODIUM
     Dosage: 300 MG TO 400 MG PER DAY
     Route: 048
     Dates: start: 2002, end: 2011
  3. ELMIRON [Suspect]
     Active Substance: PENTOSAN POLYSULFATE SODIUM
     Dosage: 300 MG TO 400 MG PER DAY
     Route: 048
     Dates: start: 20110202, end: 20160219
  4. ELMIRON [Suspect]
     Active Substance: PENTOSAN POLYSULFATE SODIUM
     Dosage: 300 MG TO 400 MG PER DAY
     Route: 048
     Dates: start: 20160401, end: 20160507
  5. ELMIRON [Suspect]
     Active Substance: PENTOSAN POLYSULFATE SODIUM
     Dosage: 300 MG TO 400 MG PER DAY
     Route: 048
     Dates: start: 20160627, end: 20160726
  6. ELMIRON [Suspect]
     Active Substance: PENTOSAN POLYSULFATE SODIUM
     Dosage: 300 MG TO 400 MG PER DAY
     Route: 048
     Dates: start: 20160810, end: 20160810
  7. ELMIRON [Suspect]
     Active Substance: PENTOSAN POLYSULFATE SODIUM
     Dosage: 300 MG TO 400 MG PER DAY
     Route: 048
     Dates: start: 20161010, end: 20180221

REACTIONS (4)
  - Dry age-related macular degeneration [Unknown]
  - Retinitis pigmentosa [Unknown]
  - Pigmentary maculopathy [Unknown]
  - Off label use [Unknown]

NARRATIVE: CASE EVENT DATE: 19970101
